FAERS Safety Report 8518673-0 (Version None)
Quarter: 2012Q3

REPORT INFORMATION
  Report Type: 
  Country: None (occurrence: None)
  Receive Date: 20120718
  Receipt Date: 20110603
  Transmission Date: 20120928
  Serious: No
  Sender: FDA-Public Use
  Company Number: US-BRISTOL-MYERS SQUIBB COMPANY-15802481

PATIENT
  Age: 49 Year
  Sex: Male
  Weight: 98 kg

DRUGS (5)
  1. HYDROXYCHLOROQUINE SULFATE [Concomitant]
  2. EVOXAC [Concomitant]
  3. COUMADIN [Suspect]
     Indication: THROMBOSIS
     Dosage: STARTED ON NOV11 AFTER 3 DAYS DISCONTINUED AGAIN RESTARTED ON 14MAY11
     Route: 048
     Dates: start: 20101101
  4. CRESTOR [Concomitant]
  5. SYNTHROID [Concomitant]

REACTIONS (1)
  - WEIGHT DECREASED [None]
